FAERS Safety Report 8429776-3 (Version None)
Quarter: 2012Q2

REPORT INFORMATION
  Report Type: 
  Country: None (occurrence: None)
  Receive Date: 20120612
  Receipt Date: 20120608
  Transmission Date: 20120825
  Serious: No
  Sender: FDA-Public Use
  Company Number: US-BAYER-2012-057877

PATIENT
  Age: 80 Year
  Sex: Male
  Weight: 83 kg

DRUGS (7)
  1. STOOL SOFTENER [Concomitant]
  2. CHOLESTEROL- AND TRIGLYCERIDE REDUCERS [Concomitant]
  3. ALEVE (CAPLET) [Suspect]
     Indication: BACK PAIN
     Dosage: 2 DF, ONCE
     Route: 048
     Dates: start: 20120606
  4. BLOOD PRESSURE MEDICATION (NOS) [Concomitant]
  5. ASPIRIN [Concomitant]
     Dosage: 81 MG, UNK
  6. GABAPENTIN [Concomitant]
  7. FAMCICLOVIR [Concomitant]

REACTIONS (3)
  - PAIN IN JAW [None]
  - HYPOAESTHESIA [None]
  - TOOTHACHE [None]
